FAERS Safety Report 10667367 (Version 2)
Quarter: 2015Q1

REPORT INFORMATION
  Report Type: Report from Study
  Country: GB (occurrence: None)
  Receive Date: 20141218
  Receipt Date: 20150130
  Transmission Date: 20150720
  Serious: Yes (Death, Other)
  Sender: FDA-Public Use
  Company Number: GB2014GSK035985

PATIENT
  Age: 50 Year
  Sex: Male
  Weight: 76.4 kg

DRUGS (3)
  1. MARAVIROC [Suspect]
     Active Substance: MARAVIROC
     Indication: HIV INFECTION
     Route: 048
     Dates: start: 20130910
  2. DARUNAVIR (DARUNAVIR) [Concomitant]
     Active Substance: DARUNAVIR
  3. RITONAVIR (RITONAVIR) [Concomitant]
     Active Substance: RITONAVIR

REACTIONS (8)
  - Left ventricular hypertrophy [None]
  - Coronary artery stenosis [None]
  - Myocardial fibrosis [None]
  - Death [None]
  - Pulmonary hypertension [None]
  - Pulmonary oedema [None]
  - Splenomegaly [None]
  - Sudden cardiac death [None]

NARRATIVE: CASE EVENT DATE: 20141204
